FAERS Safety Report 17014373 (Version 2)
Quarter: 2019Q4

REPORT INFORMATION
  Report Type: Spontaneous
  Country: US (occurrence: US)
  Receive Date: 20191111
  Receipt Date: 20191116
  Transmission Date: 20200122
  Serious: Yes (Hospitalization)
  Sender: FDA-Public Use
  Company Number: US-ROCHE-2461252

PATIENT
  Age: 52 Year
  Sex: Female

DRUGS (6)
  1. LACOSAMIDE. [Concomitant]
     Active Substance: LACOSAMIDE
     Indication: SEIZURE
  2. CLONAZEPAM. [Concomitant]
     Active Substance: CLONAZEPAM
  3. ONDANSETRON [Concomitant]
     Active Substance: ONDANSETRON
  4. PAROXETINE. [Concomitant]
     Active Substance: PAROXETINE
  5. CAPECITABINE. [Suspect]
     Active Substance: CAPECITABINE
     Indication: BREAST CANCER
     Route: 065
  6. PHENYTOIN. [Interacting]
     Active Substance: PHENYTOIN
     Indication: SEIZURE
     Route: 065

REACTIONS (9)
  - Ataxia [Recovering/Resolving]
  - Memory impairment [Recovering/Resolving]
  - Dyskinesia [Recovering/Resolving]
  - Visual impairment [Recovering/Resolving]
  - Drug interaction [Unknown]
  - Confusional state [Recovering/Resolving]
  - Headache [Recovering/Resolving]
  - Photophobia [Recovering/Resolving]
  - Chorea [Recovering/Resolving]
